FAERS Safety Report 15158314 (Version 1)
Quarter: 2018Q3

REPORT INFORMATION
  Report Type: Spontaneous
  Country: PL (occurrence: PL)
  Receive Date: 20180718
  Receipt Date: 20180718
  Transmission Date: 20181010
  Serious: Yes (Other)
  Sender: FDA-Public Use
  Company Number: PL-ROCHE-2155956

PATIENT
  Age: 33 Year
  Sex: Female

DRUGS (4)
  1. LAPATINIB [Suspect]
     Active Substance: LAPATINIB
     Indication: BREAST CANCER
     Route: 065
  2. LAPATINIB [Suspect]
     Active Substance: LAPATINIB
     Route: 065
  3. CAPECITABINE. [Suspect]
     Active Substance: CAPECITABINE
     Dosage: 750 MG/M2, TWICE A DAY FOR 14 DAYS WITH 7DAYS?LONG INTERRUPTION
     Route: 065
  4. CAPECITABINE. [Suspect]
     Active Substance: CAPECITABINE
     Indication: PRODUCT USED FOR UNKNOWN INDICATION
     Dosage: 1000 MG/M2, TWICE A DAY FOR 14 DAYS WITH 7DAYS?LONG INTERRUPTION
     Route: 065

REACTIONS (3)
  - Hyperbilirubinaemia [Unknown]
  - Palmar-plantar erythrodysaesthesia syndrome [Unknown]
  - Skin lesion [Unknown]
